FAERS Safety Report 6501357-8 (Version None)
Quarter: 2009Q4

REPORT INFORMATION
  Report Type: 
  Country: None (occurrence: None)
  Receive Date: 20091216
  Receipt Date: 20091207
  Transmission Date: 20100525
  Serious: Yes (Hospitalization, Other)
  Sender: FDA-Public Use
  Company Number: US-JNJFOC-20090908119

PATIENT
  Sex: Female
  Weight: 68.04 kg

DRUGS (1)
  1. ORTHO EVRA [Suspect]
     Indication: CONTRACEPTION
     Route: 062
     Dates: start: 20040801, end: 20050901

REACTIONS (4)
  - MENSTRUATION IRREGULAR [None]
  - PULMONARY EMBOLISM [None]
  - PULMONARY INFARCTION [None]
  - THROMBOSIS [None]
